FAERS Safety Report 4369398-7 (Version None)
Quarter: 2004Q2

REPORT INFORMATION
  Report Type: 
  Country: None (occurrence: None)
  Receive Date: 20040527
  Receipt Date: 20040511
  Transmission Date: 20050107
  Serious: Yes (Hospitalization, Other)
  Sender: FDA-Public Use
  Company Number: USA040567240

PATIENT
  Age: 55 Year
  Sex: Male

DRUGS (6)
  1. PROZAC [Suspect]
     Dosage: 20 MG IN THE MORNING
     Dates: start: 20040101
  2. ZYPREXA [Suspect]
     Indication: SCHIZOPHRENIA, PARANOID TYPE
     Dosage: 15 MG AT BEDTIME
     Dates: start: 20040301
  3. NORVASC [Concomitant]
  4. HYDROCHLOROTHIAZIDE/TRIAMTERENE [Concomitant]
  5. CLONIDINE HCL [Concomitant]
  6. RISPERDAL [Concomitant]

REACTIONS (4)
  - BLOOD CHOLESTEROL INCREASED [None]
  - BLOOD GLUCOSE INCREASED [None]
  - HIGH DENSITY LIPOPROTEIN DECREASED [None]
  - LOW DENSITY LIPOPROTEIN INCREASED [None]
